FAERS Safety Report 23804282 (Version 1)
Quarter: 2024Q2

REPORT INFORMATION
  Report Type: Report from Study
  Country: CA (occurrence: CA)
  Receive Date: 20240501
  Receipt Date: 20240501
  Transmission Date: 20240717
  Serious: Yes (Other)
  Sender: FDA-Public Use
  Company Number: CA-PFIZER INC-202400096524

PATIENT
  Age: 56 Year
  Sex: Female

DRUGS (3)
  1. PALBOCICLIB [Suspect]
     Active Substance: PALBOCICLIB
     Dosage: 1 DF
     Route: 065
  2. PAMIDRONATE DISODIUM [Suspect]
     Active Substance: PAMIDRONATE DISODIUM
     Dosage: 90 MG, MONTHLY
     Route: 065
  3. LETROZOLE [Suspect]
     Active Substance: LETROZOLE
     Dosage: 1 DF
     Route: 065

REACTIONS (2)
  - Osteonecrosis [Unknown]
  - Treatment failure [Unknown]
